FAERS Safety Report 8348441-4 (Version None)
Quarter: 2012Q2

REPORT INFORMATION
  Report Type: 
  Country: None (occurrence: None)
  Receive Date: 20120509
  Receipt Date: 20120430
  Transmission Date: 20120825
  Serious: Yes (Hospitalization)
  Sender: FDA-Public Use
  Company Number: FR-FRI-1000030181

PATIENT
  Age: 80 Year
  Sex: Male

DRUGS (2)
  1. SIMVASTATIN [Suspect]
     Indication: HYPERCHOLESTEROLAEMIA
     Dosage: 20 MG
  2. DILTIAZEM [Suspect]
     Indication: HYPERTENSION
     Dosage: 300 MG

REACTIONS (3)
  - INFLAMMATION [None]
  - CHYLOTHORAX [None]
  - ANAEMIA [None]
